FAERS Safety Report 16922288 (Version 1)
Quarter: 2019Q4

REPORT INFORMATION
  Report Type: Spontaneous
  Country: JP (occurrence: JP)
  Receive Date: 20191015
  Receipt Date: 20191015
  Transmission Date: 20200122
  Serious: Yes (Hospitalization, Other)
  Sender: FDA-Public Use
  Company Number: PHJP2019JP012946

PATIENT
  Age: 55 Year
  Sex: Female

DRUGS (3)
  1. PAZOPANIB [Suspect]
     Active Substance: PAZOPANIB
     Indication: RENAL CELL CARCINOMA
     Dosage: UNK
     Route: 048
  2. NIVOLUMAB [Suspect]
     Active Substance: NIVOLUMAB
     Indication: PRODUCT USED FOR UNKNOWN INDICATION
     Dosage: UNK
     Route: 065
  3. CEFTRIAXONE. [Suspect]
     Active Substance: CEFTRIAXONE
     Indication: URINARY TRACT INFECTION
     Dosage: UNK
     Route: 042

REACTIONS (6)
  - Oral mucosal eruption [Recovering/Resolving]
  - Erythema [Recovering/Resolving]
  - Liver disorder [Recovering/Resolving]
  - Stevens-Johnson syndrome [Recovering/Resolving]
  - Renal impairment [Recovering/Resolving]
  - Platelet count decreased [Recovering/Resolving]
